FAERS Safety Report 21163151 (Version 1)
Quarter: 2022Q3

REPORT INFORMATION
  Report Type: Spontaneous
  Country: US (occurrence: US)
  Receive Date: 20220802
  Receipt Date: 20220802
  Transmission Date: 20221026
  Serious: No
  Sender: FDA-Public Use
  Company Number: US-PFIZER INC-202201021621

PATIENT
  Age: 67 Year
  Sex: Male

DRUGS (1)
  1. LORAZEPAM [Suspect]
     Active Substance: LORAZEPAM
     Dosage: 0.5 MG
     Dates: start: 202205, end: 20220711

REACTIONS (5)
  - Withdrawal syndrome [Unknown]
  - Sleep disorder [Unknown]
  - Skin infection [Not Recovered/Not Resolved]
  - Visual impairment [Unknown]
  - Anxiety [Unknown]
